FAERS Safety Report 24355318 (Version 1)
Quarter: 2024Q3

REPORT INFORMATION
  Report Type: Spontaneous
  Country: US (occurrence: US)
  Receive Date: 20240924
  Receipt Date: 20240924
  Transmission Date: 20241017
  Serious: Yes (Other)
  Sender: CIPLA
  Company Number: US-CIPLA LTD.-2024US10379

PATIENT

DRUGS (14)
  1. CARBOPLATIN [Suspect]
     Active Substance: CARBOPLATIN
     Indication: Lung adenocarcinoma stage IV
     Dosage: UNK, FIRST-LINE THERAPY, ONE CYCLE (CYCLE = TREATMENT EVERY 3 WEEKS)
     Route: 065
     Dates: start: 202005, end: 202006
  2. CARBOPLATIN [Suspect]
     Active Substance: CARBOPLATIN
     Indication: Metastases to bone
  3. CARBOPLATIN [Suspect]
     Active Substance: CARBOPLATIN
     Indication: Metastases to liver
  4. PEMBROLIZUMAB [Suspect]
     Active Substance: PEMBROLIZUMAB
     Indication: Metastases to liver
     Dosage: UNK, FIRST-LINE THERAPY, ADDED TO THE TREATMENT REGIMEN AT CYCLE 2
     Route: 065
     Dates: start: 202005
  5. PEMBROLIZUMAB [Suspect]
     Active Substance: PEMBROLIZUMAB
     Indication: Lung adenocarcinoma stage IV
  6. PEMBROLIZUMAB [Suspect]
     Active Substance: PEMBROLIZUMAB
     Indication: Metastases to bone
  7. PEMETREXED [Suspect]
     Active Substance: PEMETREXED
     Indication: Metastases to bone
     Dosage: UNK, FIRST-LINE THERAPY, ONE CYCLE (CYCLE = TREATMENT EVERY 3 WEEKS)
     Route: 065
     Dates: start: 202005, end: 202007
  8. PEMETREXED [Suspect]
     Active Substance: PEMETREXED
     Indication: Lung adenocarcinoma stage IV
  9. PEMETREXED [Suspect]
     Active Substance: PEMETREXED
     Indication: Metastases to liver
  10. SILDENAFIL [Concomitant]
     Active Substance: SILDENAFIL
     Indication: Pulmonary arterial hypertension
     Dosage: 20 MILLIGRAM, TID
     Route: 065
     Dates: start: 201412
  11. MACITENTAN [Concomitant]
     Active Substance: MACITENTAN
     Indication: Pulmonary arterial hypertension
     Dosage: UNK, 10 MG
     Route: 065
     Dates: start: 201412
  12. RIOCIGUAT [Concomitant]
     Active Substance: RIOCIGUAT
     Indication: Lung adenocarcinoma stage IV
     Dosage: 2.5 MILLIGRAM, TID
     Route: 065
  13. RIOCIGUAT [Concomitant]
     Active Substance: RIOCIGUAT
     Indication: Pulmonary arterial hypertension
  14. SELEXIPAG [Concomitant]
     Active Substance: SELEXIPAG
     Indication: Pulmonary arterial hypertension
     Dosage: UNK, 1600 MG
     Route: 065

REACTIONS (3)
  - Dyspnoea [Unknown]
  - Pancytopenia [Unknown]
  - Cancer fatigue [Unknown]
